FAERS Safety Report 11528963 (Version 1)
Quarter: 2015Q3

REPORT INFORMATION
  Report Type: Spontaneous
  Country: GB (occurrence: GB)
  Receive Date: 20150921
  Receipt Date: 20150921
  Transmission Date: 20151125
  Serious: Yes (Other)
  Sender: FDA-Public Use
  Company Number: GB-AUROBINDO-AUR-APL-2015-08326

PATIENT
  Age: 38 Year
  Sex: Female
  Weight: 68.3 kg

DRUGS (1)
  1. SUMATRIPTAN 100MG [Suspect]
     Active Substance: SUMATRIPTAN
     Indication: MIGRAINE
     Dosage: 100 MG, UNK
     Route: 048

REACTIONS (2)
  - Dissociation [Not Recovered/Not Resolved]
  - Malaise [Not Recovered/Not Resolved]
